FAERS Safety Report 18424672 (Version 1)
Quarter: 2020Q4

REPORT INFORMATION
  Report Type: Spontaneous
  Country: MX (occurrence: MX)
  Receive Date: 20201026
  Receipt Date: 20201026
  Transmission Date: 20210114
  Serious: Yes (Other)
  Sender: FDA-Public Use
  Company Number: MX-SUN PHARMACEUTICAL INDUSTRIES LTD-2020R1-264486

PATIENT
  Age: 53 Year
  Sex: Male

DRUGS (12)
  1. VINCRISTINE [Suspect]
     Active Substance: VINCRISTINE
     Indication: LANGERHANS CELL SARCOMA
     Dosage: 4 CYCLES
     Route: 065
  2. MESNA. [Suspect]
     Active Substance: MESNA
     Indication: LANGERHANS CELL SARCOMA
     Dosage: 6 CYCLES
     Route: 065
  3. DEXAMETHASONE. [Suspect]
     Active Substance: DEXAMETHASONE
     Indication: LANGERHANS CELL SARCOMA
     Dosage: 4 CYCLES
     Route: 065
  4. PREDNISONE. [Suspect]
     Active Substance: PREDNISONE
     Indication: LANGERHANS CELL SARCOMA
     Dosage: 4 CYCLES
     Route: 065
  5. CYCLOPHOSPHAMIDE. [Suspect]
     Active Substance: CYCLOPHOSPHAMIDE
     Indication: LANGERHANS CELL SARCOMA
     Dosage: 4 CYCLES
     Route: 065
  6. EPIRRUBICIN [Suspect]
     Active Substance: EPIRUBICIN HYDROCHLORIDE
     Indication: LANGERHANS CELL SARCOMA
     Dosage: 4 CYCLES
     Route: 065
  7. IFOSFAMIDE. [Suspect]
     Active Substance: IFOSFAMIDE
     Indication: LANGERHANS CELL SARCOMA
     Dosage: 6 CYCLES
     Route: 065
  8. METHOTREXATE. [Suspect]
     Active Substance: METHOTREXATE
     Indication: LANGERHANS CELL SARCOMA
     Dosage: 25 MILLIGRAM, ONCE WEEKLY
     Route: 065
  9. MITOXANTRONE [Suspect]
     Active Substance: MITOXANTRONE HYDROCHLORIDE
     Indication: LANGERHANS CELL SARCOMA
     Dosage: 6 CYCLES
     Route: 065
  10. CARBOPLATIN. [Suspect]
     Active Substance: CARBOPLATIN
     Indication: LANGERHANS CELL SARCOMA
     Dosage: 4 CYCLES
     Route: 065
  11. CYTARABINE ARABINOSIDE [Suspect]
     Active Substance: CYTARABINE
     Indication: LANGERHANS CELL SARCOMA
     Dosage: HIGH DOSE 4 CYCLES
     Route: 065
  12. ETOPOSIDE. [Suspect]
     Active Substance: ETOPOSIDE
     Indication: LANGERHANS CELL SARCOMA
     Dosage: 6 CYCLES
     Route: 065

REACTIONS (1)
  - Treatment failure [Unknown]
